FAERS Safety Report 14984287 (Version 1)
Quarter: 2018Q2

REPORT INFORMATION
  Report Type: Spontaneous
  Country: US (occurrence: US)
  Receive Date: 20180607
  Receipt Date: 20180607
  Transmission Date: 20180711
  Serious: Yes (Hospitalization)
  Sender: FDA-Public Use
  Company Number: US-BAYER-2018-108347

PATIENT
  Age: 65 Year
  Sex: Male

DRUGS (5)
  1. PEMBROLIZUMAB. [Concomitant]
     Active Substance: PEMBROLIZUMAB
     Indication: HEPATOCELLULAR CARCINOMA
     Dosage: 200 MG, Q3WK
     Route: 042
     Dates: start: 20180405, end: 20180405
  2. BAYER ASPIRIN [Suspect]
     Active Substance: ASPIRIN
     Route: 048
     Dates: end: 20180424
  3. PLAVIX [Interacting]
     Active Substance: CLOPIDOGREL BISULFATE
     Indication: CORONARY ARTERY DISEASE
     Dates: end: 20180417
  4. PEMBROLIZUMAB. [Concomitant]
     Active Substance: PEMBROLIZUMAB
     Indication: HEPATOCELLULAR CARCINOMA
     Dosage: 200 MG, Q3WK
     Route: 042
     Dates: start: 20180426, end: 20180426
  5. PEMBROLIZUMAB. [Concomitant]
     Active Substance: PEMBROLIZUMAB
     Indication: HEPATOCELLULAR CARCINOMA
     Dosage: 200 MG, Q3WK
     Route: 042
     Dates: start: 20180524, end: 20180524

REACTIONS (4)
  - Haemoptysis [Unknown]
  - Labelled drug-drug interaction medication error [Unknown]
  - Haemoptysis [Unknown]
  - Haemoptysis [Unknown]

NARRATIVE: CASE EVENT DATE: 20180417
